FAERS Safety Report 14761331 (Version 3)
Quarter: 2019Q3

REPORT INFORMATION
  Report Type: Report from Study
  Country: AR (occurrence: AR)
  Receive Date: 20180415
  Receipt Date: 20190930
  Transmission Date: 20191004
  Serious: Yes (Other)
  Sender: FDA-Public Use
  Company Number: PHHY2018AR061572

PATIENT
  Sex: Male

DRUGS (8)
  1. DIOVAN [Suspect]
     Active Substance: VALSARTAN
     Indication: CARDIAC FAILURE
     Dosage: 1 DF, QD
     Route: 065
  2. CORBIS [Concomitant]
     Dosage: 2.5 MG, QD
     Route: 065
  3. CORBIS [Concomitant]
     Dosage: 2.5 MG, QOD
     Route: 065
  4. DIOVAN [Suspect]
     Active Substance: VALSARTAN
     Dosage: 160 MG, BID
     Route: 065
  5. ENTRESTO [Suspect]
     Active Substance: SACUBITRIL\VALSARTAN
     Indication: CARDIAC FAILURE
     Dosage: 100 MG, BID
     Route: 065
  6. DIOVAN D [Suspect]
     Active Substance: HYDROCHLOROTHIAZIDE\VALSARTAN
     Dosage: 1.5 DF (HYDROCHLOROTHIAZIDE 12.5 MG, VALSARTAN 160 MG), QD
     Route: 065
  7. DIOVAN D [Suspect]
     Active Substance: HYDROCHLOROTHIAZIDE\VALSARTAN
     Indication: PRODUCT USED FOR UNKNOWN INDICATION
     Dosage: 1 DF (HYDROCHLOROTHIAZIDE 12.5 MG, VALSARTAN 160 MG), QD
     Route: 065
  8. CORBIS [Concomitant]
     Indication: EXTRASYSTOLES
     Dosage: 5 OT, UNK (MANY YEARS AGO)
     Route: 065

REACTIONS (6)
  - Hypertension [Not Recovered/Not Resolved]
  - Blood pressure systolic increased [Recovered/Resolved]
  - Wrong technique in product usage process [Recovering/Resolving]
  - Blood pressure fluctuation [Recovered/Resolved]
  - Blood pressure diastolic decreased [Unknown]
  - Product prescribing error [Recovering/Resolving]
